FAERS Safety Report 20894569 (Version 2)
Quarter: 2022Q2

REPORT INFORMATION
  Report Type: Spontaneous
  Country: EG (occurrence: EG)
  Receive Date: 20220531
  Receipt Date: 20220610
  Transmission Date: 20220721
  Serious: Yes (Other)
  Sender: FDA-Public Use
  Company Number: EG-NOVOPROD-922406

PATIENT
  Age: 41 Year
  Sex: Female
  Weight: 90 kg

DRUGS (6)
  1. SAXENDA [Suspect]
     Active Substance: LIRAGLUTIDE
     Dosage: 1.2 MG
     Route: 058
     Dates: start: 20220310
  2. SAXENDA [Suspect]
     Active Substance: LIRAGLUTIDE
     Indication: Product used for unknown indication
     Dosage: 0.6 MG
     Route: 058
  3. VITAMINS NOS [Concomitant]
     Active Substance: VITAMINS
     Indication: Product used for unknown indication
     Dosage: ONCE DAILY (STARTED 3 MONTHS AGO)
     Route: 048
  4. VITAMIN B12 [Concomitant]
     Active Substance: CYANOCOBALAMIN
     Indication: Product used for unknown indication
     Dosage: ONCE DAILY (STARTED 3 MONTHS AGO)
     Route: 048
  5. VITAMIN D NOS [Concomitant]
     Active Substance: VITAMIN D NOS
     Indication: Product used for unknown indication
     Dosage: ONCE DAILY (STARTED 3 MONTHS AGO)
     Route: 048
  6. CHROMAX [CHROMIUM PICOLINATE;GARCINIA GUMMI-GUTTA FRUIT] [Concomitant]
     Indication: Product used for unknown indication
     Dosage: ONCE DAILY (STARTED 3 MONTHS AGO)
     Route: 048

REACTIONS (2)
  - Loss of consciousness [Unknown]
  - Heart rate increased [Unknown]
